FAERS Safety Report 10312919 (Version 1)
Quarter: 2014Q3

REPORT INFORMATION
  Report Type: Spontaneous
  Country: US (occurrence: None)
  Receive Date: 20140717
  Receipt Date: 20140717
  Transmission Date: 20150326
  Serious: Yes (Other)
  Sender: FDA-Public Use
  Company Number: None

PATIENT
  Age: 69 Year
  Sex: Female

DRUGS (1)
  1. LAMOTRIGINE. [Suspect]
     Active Substance: LAMOTRIGINE
     Indication: BIPOLAR DISORDER
     Dosage: 2 QHS/BEDTIME ORAL
     Route: 048
     Dates: start: 20140614, end: 20140716

REACTIONS (2)
  - Depressed mood [None]
  - No therapeutic response [None]

NARRATIVE: CASE EVENT DATE: 20140716
